FAERS Safety Report 4701515-9 (Version None)
Quarter: 2005Q2

REPORT INFORMATION
  Report Type: 
  Country: None (occurrence: None)
  Receive Date: 20050628
  Receipt Date: 20050620
  Transmission Date: 20051028
  Serious: Yes (Other)
  Sender: FDA-Public Use
  Company Number: FR-ROCHE-408497

PATIENT
  Age: 34 Year
  Sex: Female

DRUGS (4)
  1. NICARDIPINE HCL [Suspect]
     Indication: UTERINE CONTRACTIONS DURING PREGNANCY
     Route: 048
  2. NICARDIPINE HCL [Suspect]
     Route: 048
     Dates: end: 20050401
  3. ALBUTEROL [Concomitant]
     Indication: DRUG USE FOR UNKNOWN INDICATION
  4. GINKOR FORT [Concomitant]
     Indication: DRUG USE FOR UNKNOWN INDICATION

REACTIONS (2)
  - DRUG EXPOSURE DURING PREGNANCY [None]
  - GESTATIONAL DIABETES [None]
